FAERS Safety Report 7072737-X (Version None)
Quarter: 2010Q4

REPORT INFORMATION
  Report Type: 
  Country: None (occurrence: None)
  Receive Date: 20101028
  Receipt Date: 20101028
  Transmission Date: 20110411
  Serious: No
  Sender: FDA-Public Use
  Company Number: None

PATIENT
  Age: 29 Year
  Sex: Female
  Weight: 53.0709 kg

DRUGS (1)
  1. TOPAMAX [Suspect]
     Indication: MIGRAINE
     Dosage: 50MG 2 A DAY PO
     Route: 048
     Dates: start: 20070204, end: 20101027

REACTIONS (3)
  - ALOPECIA [None]
  - DEPRESSION [None]
  - HAIR TEXTURE ABNORMAL [None]
